FAERS Safety Report 17135935 (Version 7)
Quarter: 2020Q1

REPORT INFORMATION
  Report Type: Report from Study
  Country: US (occurrence: US)
  Receive Date: 20191210
  Receipt Date: 20200319
  Transmission Date: 20200409
  Serious: No
  Sender: FDA-Public Use
  Company Number: NVSC2019US053250

PATIENT
  Age: 91 Year
  Sex: Female

DRUGS (6)
  1. BEOVU [Suspect]
     Active Substance: BROLUCIZUMAB-DBLL
     Route: 047
  2. BEOVU [Suspect]
     Active Substance: BROLUCIZUMAB-DBLL
     Route: 047
  3. BEOVU [Suspect]
     Active Substance: BROLUCIZUMAB-DBLL
     Route: 047
  4. BEOVU [Suspect]
     Active Substance: BROLUCIZUMAB-DBLL
     Route: 047
  5. BEOVU [Suspect]
     Active Substance: BROLUCIZUMAB-DBLL
     Indication: NEOVASCULAR AGE-RELATED MACULAR DEGENERATION
     Dosage: UNK
     Route: 047
     Dates: start: 20191122
  6. EYLEA [Concomitant]
     Active Substance: AFLIBERCEPT
     Indication: PRODUCT USED FOR UNKNOWN INDICATION
     Dosage: UNK
     Route: 065

REACTIONS (10)
  - Vitreous floaters [Recovered/Resolved]
  - Vitreous floaters [Recovered/Resolved]
  - Haemoglobin decreased [Unknown]
  - Vitreous floaters [Recovered/Resolved]
  - Muscular weakness [Not Recovered/Not Resolved]
  - Hypoacusis [Unknown]
  - Sleep deficit [Unknown]
  - Thyroid disorder [Unknown]
  - Fatigue [Unknown]
  - Eye discharge [Unknown]

NARRATIVE: CASE EVENT DATE: 20191122
